FAERS Safety Report 25705380 (Version 1)
Quarter: 2025Q3

REPORT INFORMATION
  Report Type: Report from Study
  Country: BR (occurrence: BR)
  Receive Date: 20250820
  Receipt Date: 20250820
  Transmission Date: 20251021
  Serious: Yes (Other)
  Sender: TAKEDA
  Company Number: BR-TAKEDA-2025TUS072890

PATIENT
  Sex: Male

DRUGS (4)
  1. VEDOLIZUMAB [Suspect]
     Active Substance: VEDOLIZUMAB
     Indication: Colitis ulcerative
  2. APIXABAN [Concomitant]
     Active Substance: APIXABAN
  3. CILOSTAZOL [Concomitant]
     Active Substance: CILOSTAZOL
  4. DIOSMIN [Concomitant]
     Active Substance: DIOSMIN

REACTIONS (1)
  - Thrombosis [Unknown]
